FAERS Safety Report 16456289 (Version 1)
Quarter: 2019Q3

REPORT INFORMATION
  Report Type: Spontaneous
  Country: US (occurrence: US)
  Receive Date: 20190619
  Receipt Date: 20190619
  Transmission Date: 20191004
  Serious: Yes (Disabling)
  Sender: FDA-Public Use
  Company Number: None

PATIENT
  Age: 65 Year
  Sex: Female
  Weight: 67.5 kg

DRUGS (22)
  1. ASHWAGHANDA [Concomitant]
  2. ELEUTHERO [Concomitant]
     Active Substance: ELEUTHERO\HERBALS
  3. THCA [Concomitant]
  4. SAM3 [Concomitant]
  5. TENS UNIT [Concomitant]
  6. SCHISANDRA BERRY [Concomitant]
  7. ALPHA-STIM [Concomitant]
  8. MEDICAL CANNABIS [Concomitant]
     Active Substance: CANNABIS SATIVA SUBSP. INDICA TOP
  9. B-VITAMINS [Concomitant]
  10. ADAPTOGENS-ASTRAGALUS [Concomitant]
  11. CIPRO [Suspect]
     Active Substance: CIPROFLOXACIN HYDROCHLORIDE
     Indication: CYSTITIS
     Dosage: ?          QUANTITY:3 CAPSULE(S);?
     Route: 048
     Dates: start: 20051015, end: 20051018
  12. LEVOTHYROXINE. [Concomitant]
     Active Substance: LEVOTHYROXINE
  13. CALCIUM [Concomitant]
     Active Substance: CALCIUM
  14. MAGNESIUM GLYCINATE [Concomitant]
     Active Substance: MAGNESIUM GLYCINATE
  15. POTASSIUM [Concomitant]
     Active Substance: POTASSIUM
  16. LAVENDER, HOPS, MELISSA, CHAMOMILE [Concomitant]
  17. KLONOPIN [Concomitant]
     Active Substance: CLONAZEPAM
  18. HEMP CBD [Concomitant]
  19. UBIQUINOL [Concomitant]
     Active Substance: UBIQUINOL
  20. RHODIOLA ROSEA [Concomitant]
     Active Substance: HERBALS
  21. AVELOX [Suspect]
     Active Substance: MOXIFLOXACIN HYDROCHLORIDE
     Indication: EAR INFECTION
     Dosage: ?          QUANTITY:5 CAPSULE(S);?
     Route: 048
     Dates: start: 20070605, end: 20070610
  22. MAGNESIUM [Concomitant]
     Active Substance: MAGNESIUM

REACTIONS (12)
  - Muscle fatigue [None]
  - Tendon pain [None]
  - Inflammation [None]
  - Ear infection [None]
  - Fatigue [None]
  - Rotator cuff syndrome [None]
  - Urinary tract infection [None]
  - Disability [None]
  - Stevens-Johnson syndrome [None]
  - Post-traumatic stress disorder [None]
  - Neuropathy peripheral [None]
  - Loss of personal independence in daily activities [None]

NARRATIVE: CASE EVENT DATE: 20190422
